FAERS Safety Report 6250585-8 (Version None)
Quarter: 2009Q2

REPORT INFORMATION
  Report Type: 
  Country: None (occurrence: None)
  Receive Date: 20090626
  Receipt Date: 20090617
  Transmission Date: 20091009
  Serious: Yes (Hospitalization, Other)
  Sender: FDA-Public Use
  Company Number: VISP-NO-0906L-0255

PATIENT
  Age: 65 Year
  Sex: Male
  Weight: 71 kg

DRUGS (13)
  1. VISIPAQUE [Suspect]
     Indication: MYOCARDIAL ISCHAEMIA
     Dosage: 250 ML, SINGLE DOSE, I.A.
     Route: 014
     Dates: start: 20070702, end: 20070702
  2. DIGOXIN [Concomitant]
  3. PAROXETINE HCL [Concomitant]
  4. CLOPIDOGREL [Concomitant]
  5. ASPIRIN [Concomitant]
  6. FUROSEMIDE [Concomitant]
  7. ISOSORBIDE MONONITRATE [Concomitant]
  8. CARVEDILOL [Concomitant]
  9. PERINDOPRIL [Concomitant]
  10. PRAVASTATIN [Concomitant]
  11. METFORMIN HCL [Concomitant]
  12. OMEPRAZOLE [Concomitant]
  13. DIAZEPAM [Concomitant]

REACTIONS (8)
  - BLOOD CREATININE INCREASED [None]
  - DIALYSIS [None]
  - HAEMATOMA [None]
  - HAEMOGLOBIN DECREASED [None]
  - METABOLIC ACIDOSIS [None]
  - OLIGURIA [None]
  - POLYURIA [None]
  - PULMONARY CONGESTION [None]
